FAERS Safety Report 8570967-9 (Version None)
Quarter: 2012Q3

REPORT INFORMATION
  Report Type: 
  Country: None (occurrence: None)
  Receive Date: 20120806
  Receipt Date: 20120727
  Transmission Date: 20120928
  Serious: No
  Sender: FDA-Public Use
  Company Number: US-BIOGENIDEC-2012BI024444

PATIENT
  Age: 55 Year
  Sex: Female

DRUGS (1)
  1. AVONEX [Suspect]
     Indication: MULTIPLE SCLEROSIS
     Route: 030
     Dates: start: 20110912

REACTIONS (5)
  - INFLUENZA LIKE ILLNESS [None]
  - ARTIFICIAL CROWN PROCEDURE [None]
  - EYE LASER SURGERY [None]
  - INJECTION SITE HAEMORRHAGE [None]
  - MOBILITY DECREASED [None]
